FAERS Safety Report 9893856 (Version 1)
Quarter: 2014Q1

REPORT INFORMATION
  Report Type: Spontaneous
  Country: US (occurrence: US)
  Receive Date: 20140213
  Receipt Date: 20140213
  Transmission Date: 20141002
  Serious: No
  Sender: FDA-Public Use
  Company Number: US-BAYER-2014-022810

PATIENT
  Age: 45 Year
  Sex: Male
  Weight: 92.97 kg

DRUGS (1)
  1. ALEVE TABLET [Suspect]
     Indication: ARTHRITIS
     Dosage: 1 DF, BID
     Route: 048
     Dates: start: 20140201, end: 20140211

REACTIONS (2)
  - Drug ineffective [None]
  - Incorrect drug administration duration [None]
